FAERS Safety Report 5614196-7 (Version None)
Quarter: 2008Q1

REPORT INFORMATION
  Report Type: 
  Country: None (occurrence: None)
  Receive Date: 20080111
  Receipt Date: 20070129
  Transmission Date: 20080703
  Serious: Yes (Other)
  Sender: FDA-Public Use
  Company Number: HQWYE659024JUN04

PATIENT
  Age: 54 Year
  Sex: Female
  Weight: 69.92 kg

DRUGS (3)
  1. PREMPRO [Suspect]
     Indication: HORMONE REPLACEMENT THERAPY
     Dosage: ORAL
     Route: 048
     Dates: start: 19970901, end: 19990501
  2. PREMARIN [Suspect]
     Indication: HORMONE REPLACEMENT THERAPY
     Dates: start: 19941101, end: 19970901
  3. PROVERA [Suspect]
     Dates: start: 19941101, end: 19970901

REACTIONS (1)
  - BREAST CANCER [None]
